FAERS Safety Report 6266007-7 (Version None)
Quarter: 2009Q3

REPORT INFORMATION
  Report Type: 
  Country: None (occurrence: None)
  Receive Date: 20090709
  Receipt Date: 20090709
  Transmission Date: 20100115
  Serious: Yes (Hospitalization, Other)
  Sender: FDA-Public Use
  Company Number: None

PATIENT
  Age: 52 Year
  Sex: Female
  Weight: 49.8957 kg

DRUGS (3)
  1. NUTRASHIELD 70SPF COPPERTONE/SHERLING-PLOUGH [Suspect]
     Indication: PROPHYLAXIS AGAINST SOLAR RADIATION
     Dosage: COVER EXPOSED AREA OF FACE RE-APPLY FREQUENT,  ONE TIME USE
     Dates: start: 20090705, end: 20090705
  2. BENADRYL [Concomitant]
  3. ZANTAC [Concomitant]

REACTIONS (2)
  - SWELLING FACE [None]
  - THERMAL BURN [None]
